FAERS Safety Report 5829789-1 (Version None)
Quarter: 2008Q3

REPORT INFORMATION
  Report Type: 
  Country: None (occurrence: None)
  Receive Date: 20080801
  Receipt Date: 20080721
  Transmission Date: 20090109
  Serious: Yes (Hospitalization)
  Sender: FDA-Public Use
  Company Number: GB-JNJFOC-20080705941

PATIENT
  Age: 34 Year
  Sex: Male
  Weight: 95 kg

DRUGS (2)
  1. TRAMADOL HYDROCHLORIDE [Suspect]
     Indication: PAIN
     Route: 065
  2. VENLAFAXINE HCL [Suspect]
     Indication: DEPRESSION

REACTIONS (4)
  - DYSKINESIA [None]
  - MUSCLE SPASMS [None]
  - SEDATION [None]
  - SOMNOLENCE [None]
